FAERS Safety Report 24361440 (Version 1)
Quarter: 2024Q3

REPORT INFORMATION
  Report Type: Spontaneous
  Country: US (occurrence: US)
  Receive Date: 20240925
  Receipt Date: 20240925
  Transmission Date: 20241016
  Serious: Yes (Hospitalization, Other)
  Sender: GLAXOSMITHKLINE
  Company Number: US-GSKCCFUS-Case-02106673_AE-116298

PATIENT

DRUGS (1)
  1. ADVAIR DISKUS [Suspect]
     Active Substance: FLUTICASONE PROPIONATE\SALMETEROL XINAFOATE
     Indication: Oesophageal motility disorder
     Dosage: UNK

REACTIONS (7)
  - Oesophageal operation [Unknown]
  - Spinal cord herniation [Unknown]
  - Oesophageal dilation procedure [Unknown]
  - Wheezing [Not Recovered/Not Resolved]
  - Device use error [Unknown]
  - Inappropriate schedule of product administration [Unknown]
  - Off label use [Unknown]
